FAERS Safety Report 21652347 (Version 1)
Quarter: 2022Q4

REPORT INFORMATION
  Report Type: Spontaneous
  Country: JP (occurrence: JP)
  Receive Date: 20221128
  Receipt Date: 20221128
  Transmission Date: 20230113
  Serious: Yes (Hospitalization, Other)
  Sender: FDA-Public Use
  Company Number: JP-BAYER-2022P022233

PATIENT
  Age: 11 Year
  Sex: Female

DRUGS (4)
  1. NEXAVAR [Suspect]
     Active Substance: SORAFENIB
     Indication: Osteosarcoma recurrent
     Dosage: 400 MG/M2 PER DAY
  2. NEXAVAR [Suspect]
     Active Substance: SORAFENIB
     Indication: Metastases to lung
  3. EVEROLIMUS [Suspect]
     Active Substance: EVEROLIMUS
     Indication: Osteosarcoma recurrent
     Dosage: 2.5 MG/M2 PER DAY
  4. EVEROLIMUS [Suspect]
     Active Substance: EVEROLIMUS
     Indication: Metastases to lung

REACTIONS (6)
  - Pneumothorax [Recovering/Resolving]
  - Pneumothorax [Recovering/Resolving]
  - Pneumothorax [None]
  - Pulmonary fistula [None]
  - Tumour cavitation [None]
  - Off label use [None]
